FAERS Safety Report 22293213 (Version 2)
Quarter: 2023Q2

REPORT INFORMATION
  Report Type: Spontaneous
  Country: US (occurrence: US)
  Receive Date: 20230508
  Receipt Date: 20230511
  Transmission Date: 20230721
  Serious: No
  Sender: FDA-Public Use
  Company Number: US-AMGEN-USASP2023078299

PATIENT
  Sex: Female

DRUGS (1)
  1. REPATHA [Suspect]
     Active Substance: EVOLOCUMAB
     Indication: Product used for unknown indication
     Dosage: UNK
     Route: 065

REACTIONS (6)
  - Injection site swelling [Unknown]
  - Nasopharyngitis [Unknown]
  - Injection site rash [Unknown]
  - Injection site erythema [Unknown]
  - Pyrexia [Unknown]
  - Injection site induration [Unknown]

NARRATIVE: CASE EVENT DATE: 20230504
